FAERS Safety Report 10194705 (Version 12)
Quarter: 2015Q2

REPORT INFORMATION
  Report Type: Report from Study
  Country: AU (occurrence: AU)
  Receive Date: 20140526
  Receipt Date: 20150508
  Transmission Date: 20150821
  Serious: Yes (Hospitalization)
  Sender: FDA-Public Use
  Company Number: AU-ROCHE-1348603

PATIENT
  Age: 65 Year
  Sex: Female
  Weight: 54.3 kg

DRUGS (5)
  1. LORAZEPAM. [Concomitant]
     Active Substance: LORAZEPAM
     Route: 065
     Dates: start: 2007
  2. TRASTUZUMAB EMTANSINE [Suspect]
     Active Substance: ADO-TRASTUZUMAB EMTANSINE
     Indication: HER-2 POSITIVE BREAST CANCER
     Dosage: LAST DOSE PRIOR TO SAE WAS 30/JAN/2014
     Route: 042
     Dates: start: 20130905
  3. DILATREND [Concomitant]
     Active Substance: CARVEDILOL
     Route: 065
     Dates: start: 20110217
  4. PANADEINE [Concomitant]
     Active Substance: ACETAMINOPHEN\CODEINE PHOSPHATE
     Route: 065
     Dates: start: 20130927, end: 20140310
  5. OMEPRAZOLE. [Concomitant]
     Active Substance: OMEPRAZOLE
     Route: 065
     Dates: start: 20110923

REACTIONS (1)
  - Gastric antral vascular ectasia [Not Recovered/Not Resolved]

NARRATIVE: CASE EVENT DATE: 20140107
